FAERS Safety Report 13599982 (Version 2)
Quarter: 2017Q4

REPORT INFORMATION
  Report Type: Report from Study
  Country: US (occurrence: US)
  Receive Date: 20170601
  Receipt Date: 20171128
  Transmission Date: 20180320
  Serious: No
  Sender: FDA-Public Use
  Company Number: PHEH2017US016457

PATIENT
  Sex: Male

DRUGS (2)
  1. ILARIS [Suspect]
     Active Substance: CANAKINUMAB
     Indication: PRODUCT USED FOR UNKNOWN INDICATION
     Dosage: UNK EVERY 6 WEEKS
     Route: 065
     Dates: start: 20170412
  2. ILARIS [Suspect]
     Active Substance: CANAKINUMAB
     Dosage: UNK EVERY 6 WEEKS
     Route: 065
     Dates: start: 20170927

REACTIONS (1)
  - Inappropriate schedule of drug administration [Unknown]
